FAERS Safety Report 6710975-3 (Version None)
Quarter: 2010Q2

REPORT INFORMATION
  Report Type: 
  Country: None (occurrence: None)
  Receive Date: 20100505
  Receipt Date: 20100422
  Transmission Date: 20101027
  Serious: Yes (Hospitalization, Other)
  Sender: FDA-Public Use
  Company Number: US-BAYER-200941495NA

PATIENT
  Age: 50 Year
  Sex: Female
  Weight: 65 kg

DRUGS (6)
  1. YAZ [Suspect]
     Indication: MENORRHAGIA
     Route: 048
     Dates: start: 20070801
  2. SYNTHROID [Concomitant]
     Indication: AUTOIMMUNE THYROIDITIS
     Dates: start: 19850101
  3. TRAZODONE HCL [Concomitant]
     Indication: FIBROMYALGIA
     Dates: start: 20020101, end: 20070101
  4. TRAZODONE HCL [Concomitant]
     Dates: start: 20070101
  5. CLARITIN [Concomitant]
     Indication: SEASONAL ALLERGY
     Dates: start: 20050101
  6. ALLEGRA D 24 HOUR [Concomitant]
     Indication: SEASONAL ALLERGY
     Dates: start: 20050101

REACTIONS (9)
  - DEEP VEIN THROMBOSIS [None]
  - HEADACHE [None]
  - INJURY [None]
  - MUSCLE SPASMS [None]
  - PAIN [None]
  - PULMONARY EMBOLISM [None]
  - SLUGGISHNESS [None]
  - SUPERFICIAL VEIN PROMINENCE [None]
  - VENOUS INSUFFICIENCY [None]
